FAERS Safety Report 7979283-7 (Version None)
Quarter: 2011Q4

REPORT INFORMATION
  Report Type: 
  Country: None (occurrence: None)
  Receive Date: 20111214
  Receipt Date: 20111212
  Transmission Date: 20120403
  Serious: No
  Sender: FDA-Public Use
  Company Number: US-TEVA-304952USA

PATIENT
  Sex: Female

DRUGS (1)
  1. COPAXONE [Suspect]
     Indication: MULTIPLE SCLEROSIS
     Dosage: 20 MILLIGRAM;
     Route: 058
     Dates: start: 20110705

REACTIONS (5)
  - BOWEL MOVEMENT IRREGULARITY [None]
  - CHEST PAIN [None]
  - BACK PAIN [None]
  - IMMEDIATE POST-INJECTION REACTION [None]
  - NAUSEA [None]
